FAERS Safety Report 18008027 (Version 2)
Quarter: 2021Q4

REPORT INFORMATION
  Report Type: Spontaneous
  Country: US (occurrence: US)
  Receive Date: 20200710
  Receipt Date: 20211112
  Transmission Date: 20220304
  Serious: Yes (Congenital Anomaly)
  Sender: FDA-Public Use
  Company Number: US-JNJFOC-20200710662

PATIENT

DRUGS (1)
  1. TOPIRAMATE [Suspect]
     Active Substance: TOPIRAMATE
     Indication: Epilepsy
     Route: 048

REACTIONS (1)
  - Ventricular septal defect [Unknown]
